FAERS Safety Report 20776291 (Version 1)
Quarter: 2022Q2

REPORT INFORMATION
  Report Type: Spontaneous
  Country: US (occurrence: None)
  Receive Date: 20220502
  Receipt Date: 20220502
  Transmission Date: 20220721
  Serious: No
  Sender: FDA-Public Use
  Company Number: None

PATIENT
  Age: 78 Year
  Sex: Female
  Weight: 38.56 kg

DRUGS (1)
  1. XOLAIR [Suspect]
     Active Substance: OMALIZUMAB
     Indication: Product used for unknown indication
     Dosage: FREQUENCY : MONTHLY;?
     Dates: end: 20220216

REACTIONS (3)
  - Hypersensitivity [None]
  - Herpes zoster [None]
  - Hair colour changes [None]

NARRATIVE: CASE EVENT DATE: 20220119
